FAERS Safety Report 5672374-5 (Version None)
Quarter: 2008Q1

REPORT INFORMATION
  Report Type: 
  Country: None (occurrence: None)
  Receive Date: 20080319
  Receipt Date: 20080312
  Transmission Date: 20080703
  Serious: Yes (Other)
  Sender: FDA-Public Use
  Company Number: PHEH2008US02694

PATIENT
  Age: 60 Year
  Sex: Female

DRUGS (3)
  1. THALIDOMIDE [Concomitant]
  2. DEXAMETHASONE TAB [Concomitant]
  3. ZOMETA [Suspect]
     Indication: HYPERCALCAEMIA OF MALIGNANCY

REACTIONS (3)
  - GINGIVAL DISORDER [None]
  - OSTEONECROSIS [None]
  - TOOTH EXTRACTION [None]
